FAERS Safety Report 9969577 (Version 2)
Quarter: 2014Q1

REPORT INFORMATION
  Report Type: Spontaneous
  Country: IT (occurrence: IT)
  Receive Date: 20140306
  Receipt Date: 20140306
  Transmission Date: 20141002
  Serious: Yes (Other)
  Sender: FDA-Public Use
  Company Number: IT-BRISTOL-MYERS SQUIBB COMPANY-20040382

PATIENT
  Age: 57 Year
  Sex: Female
  Weight: 75 kg

DRUGS (2)
  1. CARBOPLATIN INJECTION [Suspect]
     Indication: OVARIAN CANCER
     Dosage: ONGOING?13-JAN-2014
     Route: 042
     Dates: start: 20131216
  2. PACLITAXEL [Suspect]
     Indication: OVARIAN CANCER
     Dosage: ONGOING?13-JAN-2014
     Route: 042
     Dates: start: 20131216

REACTIONS (2)
  - Neutropenia [Recovered/Resolved]
  - Leukopenia [Recovered/Resolved]
